FAERS Safety Report 5964474-7 (Version None)
Quarter: 2008Q4

REPORT INFORMATION
  Report Type: 
  Country: None (occurrence: None)
  Receive Date: 20081122
  Receipt Date: 20081122
  Transmission Date: 20090506
  Serious: Yes (Other)
  Sender: FDA-Public Use
  Company Number: None

PATIENT
  Sex: Female
  Weight: 72.1219 kg

DRUGS (2)
  1. CRESTOR [Suspect]
     Indication: BLOOD CHOLESTEROL INCREASED
     Dosage: YEL ROUND SHAPED TAB. 5 MG DAILY PO SAMPLES 3/5/08 MEDCO SUPPLIED 4/5/08
     Route: 048
     Dates: start: 20080305
  2. CRESTOR [Suspect]
     Indication: BLOOD CHOLESTEROL INCREASED
     Dosage: YEL ROUND SHAPED TAB. 5 MG DAILY PO SAMPLES 3/5/08 MEDCO SUPPLIED 4/5/08
     Route: 048
     Dates: start: 20080405

REACTIONS (8)
  - ASTHENIA [None]
  - BLOOD PRESSURE INCREASED [None]
  - DIZZINESS [None]
  - FALL [None]
  - FEELING ABNORMAL [None]
  - GAIT DISTURBANCE [None]
  - JOINT INJURY [None]
  - MALAISE [None]
